FAERS Safety Report 24234189 (Version 2)
Quarter: 2024Q3

REPORT INFORMATION
  Report Type: Spontaneous
  Country: JP (occurrence: JP)
  Receive Date: 20240821
  Receipt Date: 20240827
  Transmission Date: 20241016
  Serious: Yes (Hospitalization)
  Sender: BAYER
  Company Number: JP-BAYER-2024A119872

PATIENT
  Age: 8 Decade
  Sex: Male

DRUGS (2)
  1. NUBEQA [Suspect]
     Active Substance: DAROLUTAMIDE
     Indication: Hormone-dependent prostate cancer
     Dosage: DAILY DOSE 1200 MG
     Dates: start: 20240725
  2. DOCETAXEL [Suspect]
     Active Substance: DOCETAXEL\DOCETAXEL ANHYDROUS
     Indication: Hormone-dependent prostate cancer
     Dates: start: 20240807

REACTIONS (2)
  - Neutrophil count decreased [Recovered/Resolved]
  - Malaise [Recovering/Resolving]
